FAERS Safety Report 13754970 (Version 1)
Quarter: 2017Q3

REPORT INFORMATION
  Report Type: Spontaneous
  Country: CH (occurrence: CH)
  Receive Date: 20170714
  Receipt Date: 20170714
  Transmission Date: 20171127
  Serious: Yes (Other)
  Sender: FDA-Public Use
  Company Number: CH-ROCHE-1962559

PATIENT
  Age: 75 Year
  Sex: Male

DRUGS (2)
  1. VALIUM [Suspect]
     Active Substance: DIAZEPAM
     Indication: PRODUCT USED FOR UNKNOWN INDICATION
     Dosage: AS NEEDED
     Route: 042
  2. PHENYTOIN. [Suspect]
     Active Substance: PHENYTOIN
     Indication: EPILEPSY
     Route: 048

REACTIONS (6)
  - Nausea [Unknown]
  - Seizure [Unknown]
  - Asthenia [Unknown]
  - Vomiting [Unknown]
  - Tremor [Unknown]
  - Vertigo [Unknown]

NARRATIVE: CASE EVENT DATE: 201706
